FAERS Safety Report 7278108-5 (Version None)
Quarter: 2011Q1

REPORT INFORMATION
  Report Type: 
  Country: None (occurrence: None)
  Receive Date: 20110131
  Receipt Date: 20110101
  Transmission Date: 20110831
  Serious: Yes (Hospitalization)
  Sender: FDA-Public Use
  Company Number: 2010-3745

PATIENT
  Age: 69 Year
  Sex: Female

DRUGS (1)
  1. APO-GO AMPOULES (APOMORPHINE HYDROCHLORIDE) [Suspect]

REACTIONS (1)
  - HALLUCINATION [None]
